FAERS Safety Report 13355581 (Version 2)
Quarter: 2017Q2

REPORT INFORMATION
  Report Type: Spontaneous
  Country: None (occurrence: GB)
  Receive Date: 20170321
  Receipt Date: 20170410
  Transmission Date: 20170830
  Serious: Yes (Other)
  Sender: FDA-Public Use
  Company Number: GB-MEDAC PHARMA, INC.-1064465

PATIENT
  Age: 53 Year
  Sex: Female

DRUGS (2)
  1. ENBREL [Suspect]
     Active Substance: ETANERCEPT
     Route: 058
  2. METHOTREXATE SODIUM. [Suspect]
     Active Substance: METHOTREXATE SODIUM

REACTIONS (16)
  - Fatigue [Not Recovered/Not Resolved]
  - Diarrhoea [Recovered/Resolved]
  - Drug ineffective [Unknown]
  - Malaise [Unknown]
  - Psoriasis [Unknown]
  - Depressed mood [Unknown]
  - Nasopharyngitis [Unknown]
  - Gastroenteritis [Unknown]
  - Feeling abnormal [Unknown]
  - Lower respiratory tract infection [Unknown]
  - Menstrual disorder [Recovered/Resolved]
  - Vomiting [Recovered/Resolved]
  - Menorrhagia [Unknown]
  - Arthralgia [Unknown]
  - Somnolence [Not Recovered/Not Resolved]
  - Memory impairment [Not Recovered/Not Resolved]
